FAERS Safety Report 9514703 (Version 1)
Quarter: 2013Q1

REPORT INFORMATION
  Report Type: Spontaneous
  Country: US (occurrence: None)
  Receive Date: 20130305
  Receipt Date: 20130305
  Transmission Date: 20140127
  Serious: Yes (Other)
  Sender: FDA-Public Use
  Company Number: 163-21880-12112048

PATIENT
  Age: 43 Year
  Sex: Male

DRUGS (1)
  1. REVLIMID (LENALIDOMIDE) (25 MILLIGRAM, CAPSULES) [Suspect]
     Indication: HODGKIN^S DISEASE REFRACTORY
     Dosage: 18.75 MG, 21 IN 28 D, PO
     Route: 048
     Dates: start: 20120823

REACTIONS (2)
  - Hodgkin^s disease [None]
  - Disease progression [None]
